FAERS Safety Report 4693017-3 (Version None)
Quarter: 2005Q2

REPORT INFORMATION
  Report Type: 
  Country: None (occurrence: None)
  Receive Date: 20050615
  Receipt Date: 20050526
  Transmission Date: 20051028
  Serious: Yes (Other)
  Sender: FDA-Public Use
  Company Number: US_0411107703

PATIENT
  Age: 68 Year
  Sex: Female
  Weight: 72 kg

DRUGS (19)
  1. ZYPREXA [Suspect]
     Dosage: 20 MG DAY
     Dates: start: 20031216, end: 20040714
  2. TERNORMIN (ATENOLOL EG) [Concomitant]
  3. GLIPIZIDE [Concomitant]
  4. GLIPIZIDE / METFORMIN [Concomitant]
  5. GLYBURIDE [Concomitant]
  6. GLYBURIDE AND METFORMIN HCL [Concomitant]
  7. ROSIGLITAZONE [Concomitant]
  8. AMITRIPTYLINE HCL [Concomitant]
  9. LASILIX (FUROSEMIDE  / 00032601/) [Concomitant]
  10. GEMFIBROZIL [Concomitant]
  11. HYDROCHLOROTHIAZIDE [Concomitant]
  12. DIOVAN [Concomitant]
  13. ZOCOR [Concomitant]
  14. GABAPENTIN [Concomitant]
  15. BEXTRA [Concomitant]
  16. CARBAMAZEPINE [Concomitant]
  17. LISINOPRIL (LISINOPIRL  / 00894001/) [Concomitant]
  18. PREDNISONE (PREDNISONE  / 00044701/) [Concomitant]
  19. MIRAPEX [Concomitant]

REACTIONS (22)
  - AMNESIA [None]
  - CEREBRAL ATROPHY [None]
  - CONVULSION [None]
  - DIZZINESS [None]
  - EAR INJURY [None]
  - FALL [None]
  - GOITRE [None]
  - HEADACHE [None]
  - HYPERGLYCAEMIA [None]
  - HYPERPHAGIA [None]
  - HYPOTHYROIDISM [None]
  - INTERVERTEBRAL DISC PROTRUSION [None]
  - LACUNAR INFARCTION [None]
  - LOSS OF CONSCIOUSNESS [None]
  - NECK PAIN [None]
  - OBESITY [None]
  - PARKINSON'S DISEASE [None]
  - POLYDIPSIA [None]
  - SPINAL OSTEOARTHRITIS [None]
  - TARDIVE DYSKINESIA [None]
  - VISION BLURRED [None]
  - WEIGHT DECREASED [None]
